FAERS Safety Report 22617672 (Version 3)
Quarter: 2024Q3

REPORT INFORMATION
  Report Type: Spontaneous
  Country: US (occurrence: US)
  Receive Date: 20230620
  Receipt Date: 20240712
  Transmission Date: 20241017
  Serious: No
  Sender: PIERRE FABRE MEDICAMENT
  Company Number: US-PFM-2022-05668

PATIENT
  Sex: Female
  Weight: 6 kg

DRUGS (3)
  1. HEMANGEOL [Suspect]
     Active Substance: PROPRANOLOL HYDROCHLORIDE
     Indication: Haemangioma
     Dosage: 0.88 ML, BID (2/DAY) FOR 3 DAYS
     Route: 048
  2. HEMANGEOL [Suspect]
     Active Substance: PROPRANOLOL HYDROCHLORIDE
     Dosage: 1.6 ML, BID (2/DAY), FOR 3 DAYS,
     Route: 048
  3. HEMANGEOL [Suspect]
     Active Substance: PROPRANOLOL HYDROCHLORIDE
     Dosage: 2.5 ML, BID (2/DAY) FOR MAINTENANCE DOSING
     Route: 048

REACTIONS (3)
  - Pyrexia [Unknown]
  - Drug titration error [Unknown]
  - Off label use [Unknown]
